FAERS Safety Report 8812441 (Version 2)
Quarter: 2015Q3

REPORT INFORMATION
  Report Type: Report from Study
  Country: US (occurrence: US)
  Receive Date: 20120927
  Receipt Date: 20150707
  Transmission Date: 20151125
  Serious: Yes (Death, Hospitalization, Other)
  Sender: FDA-Public Use
  Company Number: US-ROCHE-1126644

PATIENT
  Sex: Female

DRUGS (5)
  1. AVASTIN [Suspect]
     Active Substance: BEVACIZUMAB
     Indication: BREAST CANCER FEMALE
     Route: 065
     Dates: start: 20050321
  2. OXYGEN. [Concomitant]
     Active Substance: OXYGEN
  3. TAXOL [Concomitant]
     Active Substance: PACLITAXEL
  4. DOXIL [Concomitant]
     Active Substance: DOXORUBICIN HYDROCHLORIDE
  5. AROMASIN [Concomitant]
     Active Substance: EXEMESTANE

REACTIONS (6)
  - Off label use [Unknown]
  - Death [Fatal]
  - Pulmonary embolism [Unknown]
  - Disease progression [Unknown]
  - Dyspnoea [Unknown]
  - Pain in extremity [Unknown]
